FAERS Safety Report 5090698-X (Version None)
Quarter: 2006Q3

REPORT INFORMATION
  Report Type: 
  Country: None (occurrence: None)
  Receive Date: 20060816
  Receipt Date: 20060809
  Transmission Date: 20061208
  Serious: Yes (Life-Threatening)
  Sender: FDA-Public Use
  Company Number: 200610377

PATIENT
  Age: 67 Year
  Sex: Male
  Weight: 44 kg

DRUGS (5)
  1. ALBUMINAR-5 [Suspect]
     Indication: VOLUME BLOOD DECREASED
     Dosage: 580 ML DAILY IV
     Route: 042
     Dates: start: 20060703, end: 20060703
  2. ALBUMINAR-5 [Suspect]
  3. INOVAN [Concomitant]
  4. MEXAN [Concomitant]
  5. BOSMIN [Concomitant]

REACTIONS (2)
  - ANAPHYLACTIC REACTION [None]
  - DRUG INEFFECTIVE [None]
